FAERS Safety Report 10312669 (Version 1)
Quarter: 2014Q3

REPORT INFORMATION
  Report Type: Spontaneous
  Country: US (occurrence: None)
  Receive Date: 20140716
  Receipt Date: 20140716
  Transmission Date: 20150326
  Serious: Yes (Disabling)
  Sender: FDA-Public Use
  Company Number: None

PATIENT
  Age: 23 Year
  Sex: Male
  Weight: 68.04 kg

DRUGS (1)
  1. FINASTERIDE 5 MG [Suspect]
     Active Substance: FINASTERIDE
     Indication: ALOPECIA
     Dosage: 1/4 PILL
     Route: 048
     Dates: start: 20120807, end: 20121008

REACTIONS (10)
  - Cognitive disorder [None]
  - Male sexual dysfunction [None]
  - Testicular pain [None]
  - Flat affect [None]
  - Carbohydrate intolerance [None]
  - Asthenia [None]
  - Alcoholic hangover [None]
  - Social avoidant behaviour [None]
  - Feeling abnormal [None]
  - Apathy [None]

NARRATIVE: CASE EVENT DATE: 20140715
